FAERS Safety Report 21406969 (Version 1)
Quarter: 2022Q4

REPORT INFORMATION
  Report Type: Spontaneous
  Country: FR (occurrence: FR)
  Receive Date: 20221004
  Receipt Date: 20221004
  Transmission Date: 20230112
  Serious: Yes (Death)
  Sender: FDA-Public Use
  Company Number: None

PATIENT
  Age: 75 Year
  Sex: Male

DRUGS (2)
  1. ELTROMBOPAG OLAMINE [Suspect]
     Active Substance: ELTROMBOPAG OLAMINE
     Indication: Bone marrow failure
     Dosage: UNK (2CPS DU 23/06 AU 26/083CPS DU 27/08 AU 09/09 )
     Route: 048
     Dates: start: 20220413, end: 20220909
  2. FUSIDATE SODIUM [Suspect]
     Active Substance: FUSIDATE SODIUM
     Indication: Infection
     Dosage: UNK (NON PRECISE)
     Route: 048
     Dates: start: 20220817, end: 20220912

REACTIONS (2)
  - Hyperbilirubinaemia [Fatal]
  - Overdose [Fatal]

NARRATIVE: CASE EVENT DATE: 20220902
